FAERS Safety Report 5389662-2 (Version None)
Quarter: 2007Q3

REPORT INFORMATION
  Report Type: 
  Country: None (occurrence: None)
  Receive Date: 20070717
  Receipt Date: 20070713
  Transmission Date: 20080115
  Serious: No
  Sender: FDA-Public Use
  Company Number: US-SHR-US-2007-021569

PATIENT
  Age: 31 Year
  Sex: Female
  Weight: 70 kg

DRUGS (1)
  1. MIRENA [Suspect]
     Dosage: 20 A?G/DAY, CONT
     Route: 015
     Dates: start: 20061214

REACTIONS (6)
  - INCONTINENCE [None]
  - MENORRHAGIA [None]
  - METRORRHAGIA [None]
  - OVARIAN CYST [None]
  - UTERINE LEIOMYOMA [None]
  - WEIGHT INCREASED [None]
